FAERS Safety Report 9644679 (Version 1)
Quarter: 2013Q4

REPORT INFORMATION
  Report Type: Spontaneous
  Country: FR (occurrence: FR)
  Receive Date: 20131025
  Receipt Date: 20131025
  Transmission Date: 20140711
  Serious: Yes (Hospitalization)
  Sender: FDA-Public Use
  Company Number: FR-JNJFOC-20131008788

PATIENT
  Age: 40 Year
  Sex: Female
  Weight: 35.6 kg

DRUGS (2)
  1. RISPERDAL [Suspect]
     Indication: PSYCHOTIC DISORDER
     Route: 048
     Dates: start: 20130919, end: 20130930
  2. VALIUM [Suspect]
     Indication: PSYCHOTIC DISORDER
     Route: 048
     Dates: start: 20130930, end: 20131001

REACTIONS (1)
  - Hepatocellular injury [Recovering/Resolving]
